FAERS Safety Report 17941305 (Version 1)
Quarter: 2020Q2

REPORT INFORMATION
  Report Type: Spontaneous
  Country: US (occurrence: US)
  Receive Date: 20200624
  Receipt Date: 20200624
  Transmission Date: 20200714
  Serious: Yes (Other)
  Sender: FDA-Public Use
  Company Number: US-ASTRAZENECA-2020SE78987

PATIENT
  Age: 20817 Day
  Sex: Female
  Weight: 68 kg

DRUGS (1)
  1. BYDUREON BCISE [Suspect]
     Active Substance: EXENATIDE
     Indication: DIABETES MELLITUS
     Route: 058
     Dates: start: 202005

REACTIONS (5)
  - Visual impairment [Unknown]
  - Drug dose omission by device [Recovered/Resolved]
  - Device malfunction [Unknown]
  - Intentional device misuse [Unknown]
  - Device leakage [Unknown]

NARRATIVE: CASE EVENT DATE: 20200615
